FAERS Safety Report 12756451 (Version 9)
Quarter: 2017Q1

REPORT INFORMATION
  Report Type: Report from Study
  Country: CZ (occurrence: CZ)
  Receive Date: 20160917
  Receipt Date: 20170123
  Transmission Date: 20170428
  Serious: Yes (Life-Threatening, Hospitalization)
  Sender: FDA-Public Use
  Company Number: CZ-AMGEN-CZECT2016126203

PATIENT
  Age: 75 Year
  Sex: Male
  Weight: 71 kg

DRUGS (29)
  1. ARGOFAN [Concomitant]
     Active Substance: VENLAFAXINE HYDROCHLORIDE
     Dosage: 75 MG, UNK
     Route: 048
     Dates: start: 201107, end: 20160908
  2. MODURETIC 5-50 [Concomitant]
     Active Substance: AMILORIDE HYDROCHLORIDE\HYDROCHLOROTHIAZIDE
     Dosage: 0.5 UNK, UNK
     Route: 048
     Dates: start: 20160728, end: 20160906
  3. CARFILZOMIB [Suspect]
     Active Substance: CARFILZOMIB
     Indication: PLASMA CELL MYELOMA
     Dosage: 46 MG, PER CHEMO REGIM
     Route: 042
     Dates: start: 20160809, end: 20160907
  4. PARALEN [Concomitant]
     Active Substance: ACETAMINOPHEN
     Dosage: 500 MG, UNK
     Route: 048
     Dates: start: 20160809, end: 20161115
  5. PRESTARIUM NEO [Concomitant]
     Active Substance: PERINDOPRIL ARGININE
     Dosage: 5 MG, UNK
     Route: 048
     Dates: start: 201009, end: 20160906
  6. ZOMETA [Concomitant]
     Active Substance: ZOLEDRONIC ACID
     Dosage: UNK
     Dates: start: 20091029, end: 20111130
  7. GLYCLADA [Concomitant]
     Dosage: 30 MG, UNK
     Route: 048
     Dates: start: 201504, end: 20160815
  8. VALACICLOVIR [Concomitant]
     Active Substance: VALACYCLOVIR HYDROCHLORIDE
     Dosage: 500 MG, UNK
     Route: 048
     Dates: start: 20160412, end: 20161115
  9. BONEFOS [Concomitant]
     Active Substance: CLODRONATE DISODIUM
     Dosage: UNK
     Dates: end: 20121112
  10. MAGNESII LACTICI [Concomitant]
     Active Substance: MAGNESIUM LACTATE
     Dosage: 0.5 G, UNK
     Route: 048
     Dates: start: 201105, end: 20160906
  11. GABATOR [Concomitant]
     Dosage: 300 MG, UNK
     Route: 048
     Dates: start: 20110308, end: 20160908
  12. TORVACARD NEO [Concomitant]
     Dosage: 10 MG, UNK
     Route: 048
     Dates: start: 201509, end: 20160906
  13. GLUCOPHAGE [Concomitant]
     Active Substance: METFORMIN HYDROCHLORIDE
     Dosage: 500 MG, UNK
     Route: 048
     Dates: start: 20160816, end: 20160909
  14. SALINE [Concomitant]
     Active Substance: SODIUM CHLORIDE
     Dosage: 250 ML, UNK
     Route: 042
     Dates: start: 20160809, end: 20160913
  15. DEXTROSE. [Concomitant]
     Active Substance: DEXTROSE
     Dosage: 20-50 ML, UNK
     Route: 042
     Dates: start: 20160809, end: 20160913
  16. IBANDRONIC ACID TEVA [Concomitant]
     Dosage: 50 MG, UNK
     Route: 048
     Dates: start: 20140122, end: 20160908
  17. OMEPRAZOL [Concomitant]
     Active Substance: OMEPRAZOLE
     Dosage: 20 MG, UNK
     Route: 048
     Dates: start: 20160212, end: 20160906
  18. ATENOBENE [Concomitant]
     Dosage: 25 MG, UNK
     Route: 048
     Dates: start: 201105, end: 20160913
  19. NOVALGIN [Concomitant]
     Active Substance: METAMIZOLE SODIUM
     Dosage: 500 MG, UNK
     Route: 048
     Dates: start: 201105, end: 20161115
  20. TRAJENTA [Concomitant]
     Active Substance: LINAGLIPTIN
     Dosage: 5 MG, UNK
     Route: 048
     Dates: start: 20160816, end: 20161115
  21. ZYRTEC [Concomitant]
     Active Substance: CETIRIZINE HYDROCHLORIDE
     Dosage: 1 UNK, UNK
     Route: 048
     Dates: start: 20160809, end: 20161115
  22. ANOPYRIN [Concomitant]
     Active Substance: ASPIRIN
     Dosage: 100 MG, UNK
     Route: 048
     Dates: start: 20160510, end: 20160910
  23. DEXAMETHASONE. [Suspect]
     Active Substance: DEXAMETHASONE
     Indication: PLASMA CELL MYELOMA
     Dosage: 20 MG, PER CHEMO REGIM
     Route: 048
     Dates: start: 20160809, end: 20160906
  24. KLACID [Concomitant]
     Active Substance: CLARITHROMYCIN
     Dosage: 500 MG, UNK
     Route: 048
     Dates: start: 20160810, end: 20160820
  25. CIPLOX [Concomitant]
     Active Substance: CIPROFLOXACIN HYDROCHLORIDE
     Dosage: 500 MG, UNK
     Route: 048
     Dates: start: 20160830, end: 20160907
  26. MILURIT [Concomitant]
     Active Substance: ALLOPURINOL
     Dosage: UNK
     Route: 048
     Dates: start: 20160728, end: 20161115
  27. LANZUL [Concomitant]
     Active Substance: LANSOPRAZOLE
     Dosage: 15-30 MG, UNK
     Route: 048
     Dates: start: 20160809, end: 20160926
  28. SUMETROLIM [Concomitant]
     Dosage: 480 MG, UNK
     Route: 048
     Dates: start: 20160226, end: 20161115
  29. TAMSULOSIN HYDROCHLORIDE. [Concomitant]
     Active Substance: TAMSULOSIN HYDROCHLORIDE
     Dosage: 0.4 MG, UNK
     Route: 048
     Dates: start: 201111, end: 20161115

REACTIONS (6)
  - Left ventricular dysfunction [Recovered/Resolved]
  - Cardiac failure acute [Recovered/Resolved]
  - Cardiac failure [Recovered/Resolved]
  - Pulmonary oedema [Recovered/Resolved]
  - Supraventricular tachycardia [Recovered/Resolved]
  - Atrial fibrillation [Recovered/Resolved]

NARRATIVE: CASE EVENT DATE: 20160907
